FAERS Safety Report 20655172 (Version 3)
Quarter: 2022Q2

REPORT INFORMATION
  Report Type: Report from Study
  Country: IN (occurrence: IN)
  Receive Date: 20220330
  Receipt Date: 20220413
  Transmission Date: 20220721
  Serious: Yes (Death, Life-Threatening, Hospitalization, Disabling)
  Sender: FDA-Public Use
  Company Number: IN-BAYER-2022A044074

PATIENT
  Age: 82 Year
  Sex: Female
  Weight: 54.1 kg

DRUGS (33)
  1. RIVAROXABAN [Suspect]
     Active Substance: RIVAROXABAN
     Indication: Atrial fibrillation
     Dosage: UNK
     Route: 048
     Dates: start: 20220228, end: 20220320
  2. SELOKEN XL [Concomitant]
     Indication: Hypertension
     Dosage: 50 MG, ONCE
     Route: 048
     Dates: start: 20200307, end: 20220228
  3. SELOKEN XL [Concomitant]
     Indication: Hypertension
     Dosage: 50 MG, BID
     Route: 048
     Dates: start: 20220228
  4. TORSEMIDE [Concomitant]
     Active Substance: TORSEMIDE
     Indication: Hypertension
     Dosage: 5 MG, ONCE
     Route: 048
     Dates: start: 20200307, end: 20220228
  5. TORSEMIDE [Concomitant]
     Active Substance: TORSEMIDE
     Indication: Hypertension
     Dosage: 10 MG, QD
     Route: 048
     Dates: start: 20220228
  6. CARDACE [RAMIPRIL] [Concomitant]
     Indication: Hypertension
     Dosage: 2.5 MG, ONCE
     Route: 048
     Dates: start: 20220312
  7. BECOSULES [ASCORBIC ACID;VITAMIN B NOS] [Concomitant]
     Indication: Nutritional supplementation
     Dosage: UNK UNK, ONCE
     Route: 048
     Dates: start: 20220312
  8. OXRA [Concomitant]
     Indication: Cardiovascular event prophylaxis
     Dosage: 10 MG, ONCE
     Route: 048
     Dates: start: 20220312
  9. ASPIRIN\ATORVASTATIN [Concomitant]
     Active Substance: ASPIRIN\ATORVASTATIN
     Indication: Cardiac failure congestive
     Dosage: 95 MG, ONCE
     Route: 048
     Dates: start: 20220320, end: 20220324
  10. DURON [AMIODARONE HYDROCHLORIDE] [Concomitant]
     Indication: Atrial fibrillation
     Dosage: 150 MG
     Route: 042
     Dates: start: 20220320, end: 20220325
  11. DURON [AMIODARONE HYDROCHLORIDE] [Concomitant]
     Indication: Atrial fibrillation
     Dosage: 200 MG, BID
     Route: 048
     Dates: start: 20220325
  12. LMWX [Concomitant]
     Indication: Cardiac failure congestive
     Dosage: 40 MG, ONCE
     Route: 058
     Dates: start: 20220320, end: 20220321
  13. PANSA [Concomitant]
     Indication: Gastrointestinal disorder prophylaxis
     Dosage: 40 MG, ONCE
     Route: 048
     Dates: start: 20220320, end: 20220324
  14. GLEDEPA [Concomitant]
     Indication: Cardiovascular event prophylaxis
     Dosage: 10 MG, ONCE
     Route: 048
     Dates: start: 20220320, end: 20220324
  15. TOLVAPTAN [Concomitant]
     Active Substance: TOLVAPTAN
     Indication: Cardiac failure congestive
     Dosage: 15 MG, ONCE
     Route: 048
     Dates: start: 20220321
  16. LOX [LIDOCAINE] [Concomitant]
     Indication: Local anaesthesia
     Dosage: UNK UNK, ONCE
     Route: 061
     Dates: start: 20220321, end: 20220321
  17. DOBUSTAT [Concomitant]
     Indication: Cardiogenic shock
     Dosage: 250 MG, ONCE
     Route: 042
     Dates: start: 20220321, end: 20220321
  18. SODIUM CHLORIDE [Concomitant]
     Active Substance: SODIUM CHLORIDE
     Indication: Blood electrolytes abnormal
     Dosage: 500 ML, TID
     Route: 042
     Dates: start: 20220322, end: 20220322
  19. SODIUM CHLORIDE [Concomitant]
     Active Substance: SODIUM CHLORIDE
     Indication: Blood electrolytes abnormal
     Dosage: 100 ML, TID
     Route: 042
     Dates: start: 20220322, end: 20220324
  20. SODIUM CHLORIDE [Concomitant]
     Active Substance: SODIUM CHLORIDE
     Indication: Blood electrolytes abnormal
     Dosage: 100 ML, QID
     Route: 042
     Dates: start: 20220324, end: 20220324
  21. ADRENOR [Concomitant]
     Indication: Hypotension
     Dosage: 4 MG, ONCE
     Route: 042
     Dates: start: 20220322, end: 20220322
  22. LASIX [Concomitant]
     Active Substance: FUROSEMIDE
     Indication: Ascites
     Dosage: 10 MG/ML
     Route: 042
     Dates: start: 20220322, end: 20220322
  23. RL [CALCIUM CHLORIDE;POTASSIUM CHLORIDE;SODIUM CHLORIDE;SODIUM LAC [Concomitant]
     Indication: Blood electrolytes abnormal
     Dosage: 500 ML, BID
     Route: 042
     Dates: start: 20220322, end: 20220322
  24. FEPANIL [Concomitant]
     Indication: Analgesic therapy
     Dosage: 100 ML, TID
     Route: 042
     Dates: start: 20220322, end: 20220322
  25. PIPERACILLIN SODIUM\TAZOBACTAM SODIUM [Concomitant]
     Active Substance: PIPERACILLIN SODIUM\TAZOBACTAM SODIUM
     Indication: Sepsis
     Dosage: 2.25 G, TID
     Route: 042
     Dates: start: 20220322, end: 20220324
  26. HEPAGLAN [Concomitant]
     Indication: Cardiac failure congestive
     Dosage: 25000 IU, ONCE
     Route: 058
     Dates: start: 20220322, end: 20220322
  27. THIAMINE [Concomitant]
     Active Substance: THIAMINE
     Indication: Nutritional supplementation
     Dosage: 200 MG, ONCE
     Route: 042
     Dates: start: 20220323, end: 20220325
  28. ABZORB [Concomitant]
     Indication: Intertrigo
     Dosage: 1, APPLICATION, ONCE
     Route: 061
     Dates: start: 20220323, end: 20220323
  29. ONABET [SERTACONAZOLE NITRATE] [Concomitant]
     Indication: Intertrigo
     Dosage: 1, APPLICATION, ONCE
     Route: 061
     Dates: start: 20220323, end: 20220323
  30. PROTEIN [Concomitant]
     Active Substance: PROTEIN
     Indication: Nutritional supplementation
     Dosage: 1, SCOOP, TID
     Route: 048
     Dates: start: 20220324
  31. METOPROLOL [Concomitant]
     Active Substance: METOPROLOL
     Indication: Accelerated hypertension
     Dosage: 25 MG, BID
     Route: 048
     Dates: start: 20220324, end: 20220328
  32. EPICETAM [Concomitant]
     Indication: Seizure prophylaxis
     Dosage: 100 MG, BID
     Route: 042
     Dates: start: 20220324
  33. CLOHEX [Concomitant]
     Indication: Dental disorder prophylaxis
     Dosage: 1, APPLICATION, BID
     Route: 048
     Dates: start: 20220325

REACTIONS (2)
  - Haemorrhagic cerebral infarction [Fatal]
  - Cerebral mass effect [Fatal]

NARRATIVE: CASE EVENT DATE: 20220324
